FAERS Safety Report 6813150-7 (Version None)
Quarter: 2010Q3

REPORT INFORMATION
  Report Type: 
  Country: None (occurrence: None)
  Receive Date: 20100701
  Receipt Date: 20100624
  Transmission Date: 20110219
  Serious: Yes (Other)
  Sender: FDA-Public Use
  Company Number: GB-PFIZER INC-2010078738

PATIENT
  Age: 68 Year
  Sex: Female
  Weight: 70.6 kg

DRUGS (7)
  1. ATORVASTATIN CALCIUM [Suspect]
     Indication: HYPERCHOLESTEROLAEMIA
     Dosage: 40 MG, UNK
     Route: 048
     Dates: end: 20100525
  2. BENDROFLUMETHIAZIDE [Concomitant]
     Indication: HYPERTENSION
     Dosage: 2.5 MG, UNK
     Route: 048
     Dates: start: 20100420
  3. NAFTIDROFURYL OXALATE [Concomitant]
     Indication: JOINT SWELLING
     Dosage: 100 MG, 3X/DAY
     Route: 048
  4. RAMIPRIL [Concomitant]
     Indication: HYPERTENSION
     Dosage: 10 MG, 1X/DAY
     Route: 048
  5. SALBUTAMOL [Concomitant]
     Dosage: 2 DF, AS NEEDED
     Route: 055
  6. SYMBICORT [Concomitant]
     Indication: CHRONIC OBSTRUCTIVE PULMONARY DISEASE
     Route: 055
  7. TIOTROPIUM BROMIDE [Concomitant]
     Indication: CHRONIC OBSTRUCTIVE PULMONARY DISEASE
     Dosage: 18 MG, UNK
     Route: 055

REACTIONS (3)
  - DYSPNOEA [None]
  - INTERSTITIAL LUNG DISEASE [None]
  - MOUTH ULCERATION [None]
